FAERS Safety Report 6811134-6 (Version None)
Quarter: 2010Q2

REPORT INFORMATION
  Report Type: 
  Country: None (occurrence: None)
  Receive Date: 20100630
  Receipt Date: 20090619
  Transmission Date: 20101027
  Serious: No
  Sender: FDA-Public Use
  Company Number: US-PFIZER INC-2009204709

PATIENT
  Sex: Male
  Weight: 74.842 kg

DRUGS (3)
  1. NICOTROL [Suspect]
     Indication: SMOKING CESSATION THERAPY
     Dosage: UNK
     Dates: start: 20090423
  2. DEPAKOTE [Concomitant]
     Indication: DEPRESSION
     Dosage: UNK
  3. PAXIL [Concomitant]
     Indication: DEPRESSION
     Dosage: UNK

REACTIONS (2)
  - DIZZINESS [None]
  - EUPHORIC MOOD [None]
